FAERS Safety Report 14174720 (Version 1)
Quarter: 2017Q4

REPORT INFORMATION
  Report Type: Spontaneous
  Country: US (occurrence: US)
  Receive Date: 20171109
  Receipt Date: 20171109
  Transmission Date: 20180321
  Serious: No
  Sender: FDA-Public Use
  Company Number: US-ALLERGAN-1712171US

PATIENT
  Age: 60 Year
  Sex: Female
  Weight: 67.12 kg

DRUGS (1)
  1. ALPHAGAN P [Suspect]
     Active Substance: BRIMONIDINE TARTRATE
     Indication: INTRAOCULAR PRESSURE INCREASED
     Dosage: 1 DROP TO EACH EYE, TID
     Route: 047
     Dates: start: 20170316, end: 20170325

REACTIONS (5)
  - Dry eye [Unknown]
  - Eye irritation [Recovered/Resolved]
  - Lacrimation increased [Unknown]
  - Vision blurred [Unknown]
  - Visual field defect [Not Recovered/Not Resolved]

NARRATIVE: CASE EVENT DATE: 20170316
